FAERS Safety Report 5533994-1 (Version None)
Quarter: 2007Q4

REPORT INFORMATION
  Report Type: 
  Country: None (occurrence: None)
  Receive Date: 20071130
  Receipt Date: 20071115
  Transmission Date: 20080405
  Serious: Yes (Death)
  Sender: FDA-Public Use
  Company Number: 2007000037

PATIENT
  Age: 70 Year
  Sex: Female
  Weight: 51.2565 kg

DRUGS (6)
  1. ERLOTINIB (ERLOTINIB) (TABLET) (ERLOTINIB) [Suspect]
     Indication: NON-SMALL CELL LUNG CANCER
     Dosage: (QD), ORAL
     Route: 048
     Dates: start: 20061121
  2. TRAMADOL HCL [Concomitant]
  3. PERCOCET [Concomitant]
  4. TEMAZEPAM [Concomitant]
  5. IMODIUM [Concomitant]
  6. SLO-MAG (MAGNESIUM CHLORIDE ANHYDROUS) [Concomitant]

REACTIONS (1)
  - SUDDEN DEATH [None]
